FAERS Safety Report 9198641 (Version 1)
Quarter: 2013Q1

REPORT INFORMATION
  Report Type: Spontaneous
  Country: US (occurrence: None)
  Receive Date: 20130327
  Receipt Date: 20130327
  Transmission Date: 20140127
  Serious: Yes (Other)
  Sender: FDA-Public Use
  Company Number: None

PATIENT
  Age: 30 Year
  Sex: Female
  Weight: 77.11 kg

DRUGS (1)
  1. LEVETIRACETAM [Suspect]
     Indication: STATUS EPILEPTICUS
     Dates: start: 20121011, end: 20121129

REACTIONS (3)
  - Abdominal discomfort [None]
  - Abdominal pain upper [None]
  - Drug ineffective [None]
